FAERS Safety Report 6277861-7 (Version None)
Quarter: 2009Q3

REPORT INFORMATION
  Report Type: 
  Country: None (occurrence: None)
  Receive Date: 20090717
  Receipt Date: 20090717
  Transmission Date: 20100115
  Serious: No
  Sender: FDA-Public Use
  Company Number: None

PATIENT
  Sex: Female
  Weight: 108.8633 kg

DRUGS (9)
  1. CHANTIX [Suspect]
     Indication: TOBACCO ABUSE
     Dosage: 0.5 MG AND 1 MG 2X/DAY PO
     Route: 048
     Dates: start: 20090610, end: 20090708
  2. FLUCONAZOLE [Concomitant]
  3. TERCANAZOLE [Concomitant]
  4. CLOTRIMAZOLE AND BETAMETHASONE PROPRIONATE [Concomitant]
  5. ACETIC ACID [Concomitant]
  6. ELOCON [Concomitant]
  7. NAPROXEN [Concomitant]
  8. PROCTOSOL-HC [Concomitant]
  9. PSORCON [Concomitant]

REACTIONS (5)
  - DEPRESSED MOOD [None]
  - HOSTILITY [None]
  - INCREASED APPETITE [None]
  - IRRITABILITY [None]
  - SUICIDAL IDEATION [None]
